FAERS Safety Report 9742013 (Version 1)
Quarter: 2013Q4

REPORT INFORMATION
  Report Type: Spontaneous
  Country: US (occurrence: US)
  Receive Date: 20131210
  Receipt Date: 20131210
  Transmission Date: 20140711
  Serious: No
  Sender: FDA-Public Use
  Company Number: US-PFIZER INC-2013351590

PATIENT
  Age: 34 Year
  Sex: Female

DRUGS (13)
  1. DEPO-MEDROL [Suspect]
     Dosage: UNK
  2. FLAGYL [Suspect]
     Dosage: UNK
  3. LIDOCAINE HCL [Suspect]
     Dosage: UNK
  4. REGLAN [Suspect]
     Dosage: UNK
  5. ZOMIG [Suspect]
     Dosage: UNK
  6. IMITREX [Suspect]
     Dosage: UNK
  7. OMNIPAQUE [Suspect]
     Dosage: UNK
  8. TOPAMAX [Concomitant]
     Dosage: UNK
  9. PROZAC [Concomitant]
     Dosage: UNK
  10. HYDROCODONE W/ACETAMINOPHEN [Concomitant]
     Dosage: UNK
  11. METHOCARBAMOL [Concomitant]
     Dosage: UNK
  12. MAGNESIUM [Concomitant]
     Dosage: UNK
  13. VITAMIN C [Concomitant]
     Dosage: UNK

REACTIONS (1)
  - Drug hypersensitivity [Unknown]
